FAERS Safety Report 20967137 (Version 1)
Quarter: 2022Q2

REPORT INFORMATION
  Report Type: Report from Study
  Country: US (occurrence: US)
  Receive Date: 20220616
  Receipt Date: 20220616
  Transmission Date: 20220721
  Serious: Yes (Other)
  Sender: FDA-Public Use
  Company Number: US-BRISTOL-MYERS SQUIBB COMPANY-2022-056057

PATIENT
  Age: 63 Year
  Sex: Female
  Weight: 76.204 kg

DRUGS (4)
  1. ELIQUIS [Suspect]
     Active Substance: APIXABAN
     Indication: Thrombosis
     Dosage: DOSE : UNAVAILABLE;     FREQ : ONCE A DAY
     Route: 048
     Dates: start: 202205
  2. ELIQUIS [Suspect]
     Active Substance: APIXABAN
     Route: 048
  3. LETROZOLE [Concomitant]
     Active Substance: LETROZOLE
  4. IBRANCE [Concomitant]
     Active Substance: PALBOCICLIB

REACTIONS (6)
  - Vision blurred [Unknown]
  - Ophthalmic vein thrombosis [Unknown]
  - Heart rate abnormal [Unknown]
  - Weight increased [Unknown]
  - Visual impairment [Unknown]
  - Thrombosis [Unknown]
